FAERS Safety Report 7485784-0 (Version None)
Quarter: 2011Q2

REPORT INFORMATION
  Report Type: 
  Country: None (occurrence: None)
  Receive Date: 20110516
  Receipt Date: 20110516
  Transmission Date: 20111010
  Serious: No
  Sender: FDA-Public Use
  Company Number: None

PATIENT
  Age: 69 Year
  Sex: Female
  Weight: 72.1219 kg

DRUGS (1)
  1. AZITHROMYCIN [Suspect]
     Indication: SINUSITIS
     Dosage: 250MG
     Dates: start: 20110415, end: 20110420

REACTIONS (3)
  - DIARRHOEA [None]
  - AGEUSIA [None]
  - HYPOAESTHESIA ORAL [None]
